FAERS Safety Report 5051989-1 (Version None)
Quarter: 2006Q3

REPORT INFORMATION
  Report Type: 
  Country: None (occurrence: None)
  Receive Date: 20060711
  Receipt Date: 20060628
  Transmission Date: 20061208
  Serious: Yes (Hospitalization, Other)
  Sender: FDA-Public Use
  Company Number: DEU-2006-0002315

PATIENT
  Age: 47 Year
  Sex: Male

DRUGS (3)
  1. MORPHINE SULFATE [Suspect]
     Indication: PAIN
     Dosage: 25 MG, DAILY, INTRATHECAL
     Route: 037
     Dates: start: 19990101
  2. OPIOIDS [Concomitant]
  3. ANALGESICS [Concomitant]

REACTIONS (8)
  - CATHETER RELATED COMPLICATION [None]
  - CAUDA EQUINA SYNDROME [None]
  - HYPOAESTHESIA [None]
  - INJECTION SITE NODULE [None]
  - NECROSIS [None]
  - NEURALGIA [None]
  - PAIN IN EXTREMITY [None]
  - RADICULAR PAIN [None]
